FAERS Safety Report 8184261-1 (Version None)
Quarter: 2012Q1

REPORT INFORMATION
  Report Type: 
  Country: None (occurrence: None)
  Receive Date: 20120305
  Receipt Date: 20120228
  Transmission Date: 20120608
  Serious: Yes (Hospitalization, Disabling)
  Sender: FDA-Public Use
  Company Number: MX-B.I. PHARMACEUTICALS,INC./RIDGEFIELD-2012-MX-00084MX

PATIENT
  Age: 66 Year
  Sex: Male

DRUGS (1)
  1. DABIGATRAN ETEXILATE [Suspect]
     Indication: CEREBRAL THROMBOSIS
     Dosage: 300 MG
     Route: 048
     Dates: start: 20120107, end: 20120127

REACTIONS (1)
  - THROMBOSIS [None]
